FAERS Safety Report 5419501-2 (Version None)
Quarter: 2007Q3

REPORT INFORMATION
  Report Type: 
  Country: None (occurrence: None)
  Receive Date: 20070817
  Receipt Date: 20070817
  Transmission Date: 20080115
  Serious: No
  Sender: FDA-Public Use
  Company Number: None

PATIENT
  Age: 58 Year
  Sex: Male
  Weight: 98 kg

DRUGS (11)
  1. MEROPENEM 500MG [Suspect]
     Indication: SEPTIC SHOCK
     Dosage: 500MG Q12H IV
     Route: 042
     Dates: start: 20070807, end: 20070813
  2. ENOXAPARIN SODIUM [Concomitant]
  3. DIANEAL LOW CA [Concomitant]
  4. PANTOPRAZOLE SODIUM [Concomitant]
  5. FENTANYL [Concomitant]
  6. PHENYLEPHRINE [Concomitant]
  7. NOVOLIN R [Concomitant]
  8. MAGNESIUM SULFATE [Concomitant]
  9. DEXTROSE 5% [Concomitant]
  10. SODIUM CHLORIDE [Concomitant]
  11. POTASSIUM CHLORIDE [Concomitant]

REACTIONS (2)
  - GRAND MAL CONVULSION [None]
  - MENINGITIS [None]
